FAERS Safety Report 6368395-X (Version None)
Quarter: 2009Q3

REPORT INFORMATION
  Report Type: 
  Country: None (occurrence: None)
  Receive Date: 20090915
  Receipt Date: 20090522
  Transmission Date: 20100115
  Serious: Yes (Other)
  Sender: FDA-Public Use
  Company Number: DSA_33696_2009

PATIENT
  Sex: Female
  Weight: 59.8748 kg

DRUGS (2)
  1. XENAZINE [Suspect]
     Indication: HUNTINGTON'S CHOREA
     Dosage: (12.5 MG QD ORAL), (12.5 MG BID ORAL)
     Route: 048
     Dates: start: 20090506, end: 20090512
  2. XENAZINE [Suspect]
     Indication: HUNTINGTON'S CHOREA
     Dosage: (12.5 MG QD ORAL), (12.5 MG BID ORAL)
     Route: 048
     Dates: start: 20090513, end: 20090522

REACTIONS (1)
  - SUICIDAL IDEATION [None]
